FAERS Safety Report 12155667 (Version 2)
Quarter: 2016Q2

REPORT INFORMATION
  Report Type: Spontaneous
  Country: DE (occurrence: DE)
  Receive Date: 20160307
  Receipt Date: 20160407
  Transmission Date: 20160815
  Serious: Yes (Death, Hospitalization, Other)
  Sender: FDA-Public Use
  Company Number: DE-B.I. PHARMACEUTICALS,INC./RIDGEFIELD-2016-BI-12992DE

PATIENT
  Age: 88 Year
  Sex: Male

DRUGS (1)
  1. PRADAXA [Suspect]
     Active Substance: DABIGATRAN ETEXILATE MESYLATE
     Indication: ATRIAL FIBRILLATION
     Dosage: 300 MG
     Route: 065
     Dates: end: 20130918

REACTIONS (7)
  - Colitis ischaemic [Unknown]
  - Peritonitis [Unknown]
  - Intestinal perforation [Unknown]
  - Procedural haemorrhage [Unknown]
  - Septic shock [Fatal]
  - Renal failure [Unknown]
  - Acute abdomen [Unknown]
